FAERS Safety Report 18257030 (Version 1)
Quarter: 2020Q3

REPORT INFORMATION
  Report Type: Spontaneous
  Country: US (occurrence: US)
  Receive Date: 20200910
  Receipt Date: 20200910
  Transmission Date: 20201103
  Serious: Yes (Hospitalization)
  Sender: FDA-Public Use
  Company Number: None

PATIENT
  Age: 88 Year
  Sex: Male

DRUGS (1)
  1. ENTECAVIR. [Suspect]
     Active Substance: ENTECAVIR
     Route: 048
     Dates: start: 201912

REACTIONS (3)
  - Peripheral swelling [None]
  - Cardiac failure congestive [None]
  - Lymphoma [None]

NARRATIVE: CASE EVENT DATE: 20200817
